FAERS Safety Report 5599841-7 (Version None)
Quarter: 2008Q1

REPORT INFORMATION
  Report Type: 
  Country: None (occurrence: None)
  Receive Date: 20080123
  Receipt Date: 20080114
  Transmission Date: 20080703
  Serious: Yes (Hospitalization, Other)
  Sender: FDA-Public Use
  Company Number: US-ROCHE-484651

PATIENT
  Age: 49 Year
  Sex: Female

DRUGS (4)
  1. PEGASYS [Suspect]
     Indication: HEPATITIS C
     Dosage: FORM: PRE-FILLED SYRINGE
     Route: 065
     Dates: start: 20070112, end: 20070216
  2. PEGASYS [Suspect]
     Dosage: BACK ON TREATMENT STARTING WEEK 7, FORM: PREFILLED SYRINGE
     Route: 065
     Dates: start: 20070727, end: 20080104
  3. RIBAVIRIN [Suspect]
     Indication: HEPATITIS C
     Route: 065
     Dates: start: 20070112, end: 20070216
  4. RIBAVIRIN [Suspect]
     Dosage: BACK ON TREATMENT STARTING WEEK 7
     Route: 065
     Dates: start: 20070727, end: 20080104

REACTIONS (5)
  - FATIGUE [None]
  - GALLBLADDER DISORDER [None]
  - GASTRIC ULCER [None]
  - HEART RATE INCREASED [None]
  - PANCREATITIS [None]
